FAERS Safety Report 7204318-9 (Version None)
Quarter: 2010Q4

REPORT INFORMATION
  Report Type: 
  Country: None (occurrence: None)
  Receive Date: 20101230
  Receipt Date: 20101227
  Transmission Date: 20110411
  Serious: Yes (Death, Other)
  Sender: FDA-Public Use
  Company Number: US-ROCHE-750440

PATIENT

DRUGS (2)
  1. CEFTRIAXONE SODIUM [Suspect]
     Dosage: FOR 5-7 DAYS
     Route: 042
  2. CLARITHROMYCIN [Concomitant]
     Dosage: ADJUNCTIVE THERAPY, ON DAY 1
     Route: 048

REACTIONS (5)
  - DIARRHOEA [None]
  - HEPATIC FAILURE [None]
  - HYPERTENSION [None]
  - HYPOKALAEMIA [None]
  - MULTI-ORGAN FAILURE [None]
